FAERS Safety Report 8550050 (Version 3)
Quarter: 2013Q2

REPORT INFORMATION
  Report Type: Report from Study
  Country: MX (occurrence: MX)
  Receive Date: 20120507
  Receipt Date: 20130425
  Transmission Date: 20140414
  Serious: Yes (Death, Other)
  Sender: FDA-Public Use
  Company Number: PHHY2012MX037981

PATIENT
  Age: 76 Year
  Sex: Male

DRUGS (4)
  1. STALEVO [Suspect]
     Indication: PARKINSON^S DISEASE
     Dosage: 3 TABLETS DAILY OF 200/100/25 MG
     Route: 048
     Dates: start: 20090525
  2. STALEVO [Suspect]
     Dosage: 3 TABLETS DAILY OF 200/150/37.5 MG
  3. LOSARTAN [Concomitant]
     Indication: HYPERTENSION
     Dosage: 1 DF, PER DAY
  4. DRUG USED IN DIABETES [Concomitant]
     Indication: DIABETES MELLITUS

REACTIONS (5)
  - Myocardial infarction [Fatal]
  - Respiratory arrest [Unknown]
  - Dyspnoea [Unknown]
  - Feeling abnormal [Unknown]
  - Cough [Unknown]
